FAERS Safety Report 8463661 (Version 3)
Quarter: 2012Q4

REPORT INFORMATION
  Report Type: 
  Country: US (occurrence: US)
  Receive Date: 20120316
  Receipt Date: 20121030
  Transmission Date: 20130627
  Serious: Yes (Hospitalization)
  Sender: FDA-Public Use
  Company Number: US-BAYER-2012-023855

PATIENT
  Age: 22 Year
  Sex: Female
  Weight: 122.45 kg

DRUGS (1)
  1. YAZ [Suspect]
     Dosage: UNK
     Dates: start: 200707, end: 200906

REACTIONS (1)
  - Cholecystitis infective [None]
